FAERS Safety Report 4313692-2 (Version None)
Quarter: 2004Q1

REPORT INFORMATION
  Report Type: 
  Country: None (occurrence: None)
  Receive Date: 20040305
  Receipt Date: 20040220
  Transmission Date: 20041129
  Serious: Yes (Other)
  Sender: FDA-Public Use
  Company Number: 200203530

PATIENT
  Age: 51 Year
  Sex: Female

DRUGS (1)
  1. BOTOX [Suspect]
     Indication: TORTICOLLIS
     Dates: start: 20020207

REACTIONS (11)
  - ATROPHY [None]
  - DEPRESSION [None]
  - FATIGUE [None]
  - FOOD POISONING [None]
  - IMPAIRED WORK ABILITY [None]
  - MUSCLE DISORDER [None]
  - MUSCLE SPASMS [None]
  - MUSCULAR WEAKNESS [None]
  - PAIN [None]
  - PRURITUS GENERALISED [None]
  - SCIATICA [None]
